FAERS Safety Report 17750296 (Version 1)
Quarter: 2020Q2

REPORT INFORMATION
  Report Type: Spontaneous
  Country: US (occurrence: US)
  Receive Date: 20200506
  Receipt Date: 20200506
  Transmission Date: 20200714
  Serious: No
  Sender: FDA-Public Use
  Company Number: US-PFIZER INC-2020180128

PATIENT
  Age: 55 Year
  Sex: Female
  Weight: 95.25 kg

DRUGS (2)
  1. TOPAMAX [Concomitant]
     Active Substance: TOPIRAMATE
     Dosage: UNK
  2. XELJANZ [Suspect]
     Active Substance: TOFACITINIB CITRATE
     Indication: RHEUMATOID ARTHRITIS
     Dosage: 5 MG, 2X/DAY (HALF A TABLET IN THE MORNING AND HALF A TABLET AT NIGHT)
     Route: 048
     Dates: start: 202004

REACTIONS (2)
  - Condition aggravated [Unknown]
  - Stress [Unknown]
